FAERS Safety Report 6344015-5 (Version None)
Quarter: 2009Q3

REPORT INFORMATION
  Report Type: 
  Country: None (occurrence: None)
  Receive Date: 20090908
  Receipt Date: 20090827
  Transmission Date: 20100115
  Serious: Yes (Other)
  Sender: FDA-Public Use
  Company Number: DE-PFIZER INC-2009263959

PATIENT

DRUGS (5)
  1. ATARAX [Suspect]
     Dosage: 250 MG, SINGLE
     Route: 048
     Dates: start: 20090801
  2. DICLOFENAC SODIUM [Suspect]
     Dosage: UNK
     Route: 048
     Dates: start: 20090801
  3. ALPRAZOLAM [Suspect]
     Dosage: 5 MG, SINGLE, 10 TABLETS
     Route: 048
     Dates: start: 20090801
  4. THIOGAMMA [Suspect]
     Dosage: 6000 MG, SINGLE, 10 TABLETS
     Route: 048
     Dates: start: 20090801
  5. VENLAFAXINE [Suspect]
     Dosage: 750 MG, SINGLE, 10 TABLETS
     Route: 048
     Dates: start: 20090801

REACTIONS (1)
  - SUICIDE ATTEMPT [None]
